FAERS Safety Report 15577180 (Version 2)
Quarter: 2019Q1

REPORT INFORMATION
  Report Type: Spontaneous
  Country: BR (occurrence: BR)
  Receive Date: 20181102
  Receipt Date: 20190108
  Transmission Date: 20190417
  Serious: Yes (Other)
  Sender: FDA-Public Use
  Company Number: BR-BRISTOL-MYERS SQUIBB COMPANY-BMS-2018-100796

PATIENT
  Age: 72 Year
  Sex: Male

DRUGS (1)
  1. OPDIVO [Suspect]
     Active Substance: NIVOLUMAB
     Indication: SQUAMOUS CELL CARCINOMA OF THE TONGUE
     Dosage: UNK
     Route: 065

REACTIONS (4)
  - Air embolism [Unknown]
  - Pneumatosis intestinalis [Unknown]
  - Pneumoperitoneum [Unknown]
  - Colitis [Unknown]

NARRATIVE: CASE EVENT DATE: 20180805
